FAERS Safety Report 7085448-1 (Version None)
Quarter: 2010Q4

REPORT INFORMATION
  Report Type: 
  Country: None (occurrence: None)
  Receive Date: 20101105
  Receipt Date: 20101029
  Transmission Date: 20110411
  Serious: Yes (Death, Other)
  Sender: FDA-Public Use
  Company Number: US-PFIZER INC-2010127406

PATIENT
  Sex: Male

DRUGS (15)
  1. REVATIO [Suspect]
     Dosage: 30 MG, 3X/DAY
     Route: 048
  2. REVATIO [Suspect]
     Dosage: 20 MG, UNK
     Route: 048
  3. LIPITOR [Concomitant]
  4. LIPITOR [Concomitant]
  5. PROVENTIL SOLUTION [Concomitant]
     Dosage: (2.5 MG/3 ML) 0.083%
  6. ACETAMINOPHEN [Concomitant]
  7. OXYGEN [Concomitant]
  8. WARFARIN [Concomitant]
  9. WARFARIN [Concomitant]
  10. TREPROSTINIL SODIUM [Concomitant]
  11. SPIRIVA [Concomitant]
  12. GLUCOPHAGE [Concomitant]
  13. VITAMIN D [Concomitant]
     Route: 048
  14. ASPIRIN [Concomitant]
     Route: 048
  15. MULTI-VITAMINS [Concomitant]
     Route: 048

REACTIONS (6)
  - DEATH [None]
  - DILATATION VENTRICULAR [None]
  - PULMONARY HYPERTENSION [None]
  - RIGHT VENTRICULAR FAILURE [None]
  - VENTRICULAR DYSFUNCTION [None]
  - VENTRICULAR HYPOKINESIA [None]
